FAERS Safety Report 8850653 (Version 2)
Quarter: 2013Q1

REPORT INFORMATION
  Report Type: Spontaneous
  Country: US (occurrence: US)
  Receive Date: 20121019
  Receipt Date: 20130123
  Transmission Date: 20140127
  Serious: No
  Sender: FDA-Public Use
  Company Number: US-009507513-1210USA008620

PATIENT
  Age: 73 Year
  Sex: Female

DRUGS (6)
  1. VYTORIN [Suspect]
     Indication: BLOOD CHOLESTEROL
     Dosage: 10/40 MG, QD
     Route: 048
     Dates: start: 20120911
  2. ZOLOFT [Concomitant]
  3. BISOPROLOL FUMARATE [Concomitant]
  4. AMLODIPINE BESYLATE [Concomitant]
  5. RAMIPRIL [Concomitant]
  6. KEPPRA [Concomitant]

REACTIONS (2)
  - Dizziness [Unknown]
  - Hypertension [Unknown]
